FAERS Safety Report 9621562 (Version 1)
Quarter: 2013Q4

REPORT INFORMATION
  Report Type: Spontaneous
  Country: US (occurrence: None)
  Receive Date: 20131011
  Receipt Date: 20131011
  Transmission Date: 20140711
  Serious: Yes (Life-Threatening, Hospitalization)
  Sender: FDA-Public Use
  Company Number: None

PATIENT
  Age: 40 Year
  Sex: Female
  Weight: 65 kg

DRUGS (5)
  1. BELIMUMAB [Suspect]
     Indication: SYSTEMIC LUPUS ERYTHEMATOSUS
     Dates: start: 20120801, end: 20130401
  2. BELIMUMAB [Suspect]
     Indication: ALOPECIA
     Dates: start: 20120801, end: 20130401
  3. BELIMUMAB [Suspect]
     Indication: RASH
     Dates: start: 20120801, end: 20130401
  4. CELLCEPT [Concomitant]
  5. PREDNISONE [Concomitant]

REACTIONS (1)
  - Progressive multifocal leukoencephalopathy [None]
